FAERS Safety Report 8030472-5 (Version None)
Quarter: 2012Q1

REPORT INFORMATION
  Report Type: 
  Country: None (occurrence: None)
  Receive Date: 20120109
  Receipt Date: 20120106
  Transmission Date: 20120608
  Serious: Yes (Death, Hospitalization, Other)
  Sender: FDA-Public Use
  Company Number: US-B.I. PHARMACEUTICALS,INC./RIDGEFIELD-2011-BP-25714BP

PATIENT
  Age: 87 Year
  Sex: Female
  Weight: 46.6 kg

DRUGS (11)
  1. M.V.I. [Concomitant]
  2. APRESOLINE [Concomitant]
     Indication: HYPERTENSION
  3. BENICAR HCT [Concomitant]
     Indication: HYPERTENSION
     Route: 048
  4. SYNTHROID [Concomitant]
     Indication: HYPOTHYROIDISM
     Dosage: 0.088 MG
     Route: 048
  5. PRADAXA [Suspect]
     Indication: ATRIAL FIBRILLATION
     Dosage: 300 MG
     Route: 048
     Dates: start: 20110801, end: 20111013
  6. APRESOLINE [Concomitant]
     Indication: CARDIAC FAILURE CONGESTIVE
     Dosage: 200 MG
     Route: 048
  7. TOPROL-XL [Concomitant]
     Indication: CORONARY ARTERY DISEASE
     Dosage: 25 MG
     Route: 048
  8. TEMAZEPAM [Concomitant]
     Indication: SLEEP DISORDER
     Dosage: 15 MG
  9. DOCUSATE [Concomitant]
     Indication: ABNORMAL FAECES
     Route: 048
  10. BONIVA [Concomitant]
     Indication: OSTEOARTHRITIS
  11. ANASTROZOLE [Concomitant]
     Indication: BREAST CANCER
     Dosage: 1 MG
     Route: 048

REACTIONS (5)
  - DEATH [None]
  - ENDOCARDITIS [None]
  - CONFUSIONAL STATE [None]
  - LETHARGY [None]
  - FALL [None]
